FAERS Safety Report 6057977-0 (Version None)
Quarter: 2009Q1

REPORT INFORMATION
  Report Type: 
  Country: None (occurrence: None)
  Receive Date: 20090127
  Receipt Date: 20090122
  Transmission Date: 20090719
  Serious: Yes (Death)
  Sender: FDA-Public Use
  Company Number: POMP-1000446

PATIENT
  Age: 3 Month
  Sex: Female
  Weight: 5.2 kg

DRUGS (3)
  1. MYOZYME [Suspect]
     Indication: GLYCOGEN STORAGE DISEASE TYPE II
     Dosage: 100 MG, Q2W, INTRAVENOUS
     Route: 042
     Dates: start: 20081223, end: 20090106
  2. NYSTATIN [Concomitant]
  3. LASIX [Concomitant]

REACTIONS (5)
  - APNOEA [None]
  - ASTHENIA [None]
  - CARDIAC ARREST [None]
  - FEEDING DISORDER OF INFANCY OR EARLY CHILDHOOD [None]
  - RESPIRATORY FAILURE [None]
